FAERS Safety Report 23162288 (Version 2)
Quarter: 2023Q4

REPORT INFORMATION
  Report Type: Spontaneous
  Country: US (occurrence: US)
  Receive Date: 20231109
  Receipt Date: 20231225
  Transmission Date: 20240110
  Serious: No
  Sender: FDA-Public Use
  Company Number: US-SANOFI-01828267

PATIENT
  Age: 66 Year
  Sex: Female

DRUGS (2)
  1. KEVZARA [Suspect]
     Active Substance: SARILUMAB
     Indication: Polymyalgia rheumatica
     Dosage: UNK, 1X
  2. KEVZARA [Suspect]
     Active Substance: SARILUMAB
     Dosage: 200 MG, QOW
     Route: 058
     Dates: start: 20230903, end: 20231112

REACTIONS (7)
  - Erythema [Unknown]
  - Pain in extremity [Unknown]
  - Injection site rash [Unknown]
  - Injection site discolouration [Recovered/Resolved]
  - Urticaria [Recovered/Resolved]
  - Injection site bruising [Unknown]
  - Injection site urticaria [Unknown]

NARRATIVE: CASE EVENT DATE: 20231029
